FAERS Safety Report 16230064 (Version 3)
Quarter: 2019Q3

REPORT INFORMATION
  Report Type: Spontaneous
  Country: US (occurrence: US)
  Receive Date: 20190423
  Receipt Date: 20190827
  Transmission Date: 20191004
  Serious: No
  Sender: FDA-Public Use
  Company Number: US-LEXICON PHARMACEUTICALS, INC-19-1606-00398

PATIENT
  Sex: Female

DRUGS (2)
  1. OCTREOTIDE. [Concomitant]
     Active Substance: OCTREOTIDE
  2. TELOTRISTAT ETHYL [Suspect]
     Active Substance: TELOTRISTAT ETHYL
     Indication: CARCINOID SYNDROME
     Route: 048
     Dates: start: 20190311

REACTIONS (4)
  - Gout [Not Recovered/Not Resolved]
  - Nausea [Recovered/Resolved]
  - Gastroenteritis viral [Recovered/Resolved]
  - Urinary tract infection [Not Recovered/Not Resolved]
